FAERS Safety Report 20597357 (Version 1)
Quarter: 2022Q1

REPORT INFORMATION
  Report Type: Spontaneous
  Country: US (occurrence: US)
  Receive Date: 20220315
  Receipt Date: 20220315
  Transmission Date: 20220423
  Serious: Yes (Other)
  Sender: FDA-Public Use
  Company Number: US-LUPIN PHARMACEUTICALS INC.-2022-03519

PATIENT
  Age: 16 Year
  Sex: Male

DRUGS (3)
  1. TESTOSTERONE [Suspect]
     Active Substance: TESTOSTERONE
     Indication: Transgender hormonal therapy
     Dosage: 0.125 MG (WEEKLY)
     Route: 058
  2. TESTOSTERONE [Suspect]
     Active Substance: TESTOSTERONE
     Dosage: UNK (THE TESTOSTERONE DOSE WAS THEN INCREASED ACCORDING TO THE PROVIDER^S GAHT PROTOCOL)
     Route: 058
  3. DOXYCYCLINE [Suspect]
     Active Substance: DOXYCYCLINE
     Indication: Acne fulminans
     Dosage: UNK
     Route: 065

REACTIONS (2)
  - Acne fulminans [Recovering/Resolving]
  - Drug intolerance [Unknown]
